FAERS Safety Report 4954804-7 (Version None)
Quarter: 2006Q1

REPORT INFORMATION
  Report Type: 
  Country: None (occurrence: None)
  Receive Date: 20060327
  Receipt Date: 20050218
  Transmission Date: 20060701
  Serious: Yes (Hospitalization)
  Sender: FDA-Public Use
  Company Number: US-MERCK-0502USA02955

PATIENT
  Age: 71 Year
  Sex: Male
  Weight: 125 kg

DRUGS (30)
  1. VIOXX [Suspect]
     Indication: BACK PAIN
     Route: 048
     Dates: start: 20001201, end: 20010816
  2. VIOXX [Suspect]
     Route: 048
     Dates: start: 20020115, end: 20040521
  3. ZESTRIL [Concomitant]
     Route: 065
  4. NITROQUICK [Concomitant]
     Route: 065
  5. GLIPIZIDE [Concomitant]
     Route: 065
  6. GLUCOPHAGE [Concomitant]
     Route: 065
  7. KLOR-CON [Concomitant]
     Route: 065
  8. TOPAMAX [Concomitant]
     Route: 065
  9. LIPITOR [Concomitant]
     Route: 065
  10. TERAZOSIN HYDROCHLORIDE [Concomitant]
     Route: 065
  11. METFORMIN [Concomitant]
     Route: 065
  12. K-DUR 10 [Concomitant]
     Route: 065
  13. GEMFIBROZIL [Concomitant]
     Route: 065
  14. AVODART [Concomitant]
     Route: 065
  15. LOTREL [Concomitant]
     Route: 065
  16. VEETIDS [Concomitant]
     Route: 065
  17. MIRALAX [Concomitant]
     Route: 065
  18. PREVACID [Concomitant]
     Route: 065
  19. FUROSEMIDE [Concomitant]
     Route: 065
  20. CIPRO [Concomitant]
     Route: 065
  21. METOPROLOL [Concomitant]
     Route: 065
  22. MYTUSSIN [Concomitant]
     Route: 065
  23. AMBIEN [Concomitant]
     Route: 065
  24. SKELAXIN [Concomitant]
     Route: 065
  25. CLONIDINE [Concomitant]
     Route: 065
  26. ZITHROMAX [Concomitant]
     Route: 065
  27. HYDRALAZINE [Concomitant]
     Route: 065
  28. DITROPAN [Concomitant]
     Route: 065
  29. ASPIRIN [Concomitant]
     Route: 065
  30. NITROGLYCERIN [Concomitant]
     Route: 060

REACTIONS (10)
  - ANAEMIA POSTOPERATIVE [None]
  - ANGINA PECTORIS [None]
  - CORONARY ARTERY DISEASE [None]
  - GASTROOESOPHAGEAL REFLUX DISEASE [None]
  - HYPERLIPIDAEMIA [None]
  - HYPERTENSION [None]
  - INJURY [None]
  - INTERMITTENT CLAUDICATION [None]
  - RENAL FAILURE [None]
  - VENTRICULAR DYSKINESIA [None]
